FAERS Safety Report 25518696 (Version 2)
Quarter: 2025Q3

REPORT INFORMATION
  Report Type: Spontaneous
  Country: US (occurrence: US)
  Receive Date: 20250704
  Receipt Date: 20250807
  Transmission Date: 20251021
  Serious: Yes (Hospitalization, Other)
  Sender: BIOVITRUM
  Company Number: US-BIOVITRUM-2025-US-004726

PATIENT
  Age: 82 Year
  Sex: Male

DRUGS (4)
  1. KINERET [Suspect]
     Active Substance: ANAKINRA
     Indication: Chondrocalcinosis
     Route: 058
  2. KINERET [Suspect]
     Active Substance: ANAKINRA
     Dates: start: 202308
  3. BASAGLAR [Concomitant]
     Active Substance: INSULIN GLARGINE
     Indication: Product used for unknown indication
  4. TOPROL XL [Concomitant]
     Active Substance: METOPROLOL SUCCINATE
     Indication: Product used for unknown indication

REACTIONS (4)
  - Large intestine infection [Not Recovered/Not Resolved]
  - Colitis ulcerative [Unknown]
  - Off label use [Recovered/Resolved]
  - Abnormal faeces [Unknown]

NARRATIVE: CASE EVENT DATE: 20230801
